FAERS Safety Report 15020444 (Version 1)
Quarter: 2018Q2

REPORT INFORMATION
  Report Type: Spontaneous
  Country: US (occurrence: US)
  Receive Date: 20180531
  Receipt Date: 20180531
  Transmission Date: 20180711
  Serious: Yes (Other)
  Sender: FDA-Public Use
  Company Number: None

PATIENT
  Age: 76 Year
  Sex: Male
  Weight: 78.75 kg

DRUGS (3)
  1. MICARDIS [Concomitant]
     Active Substance: TELMISARTAN
  2. ATENOLOL. [Concomitant]
     Active Substance: ATENOLOL
  3. TELMISARTAN. [Suspect]
     Active Substance: TELMISARTAN
     Indication: HYPERTENSION
     Dosage: ?          QUANTITY:30 TABLET(S);?
     Route: 048
     Dates: start: 20180511, end: 20180515

REACTIONS (9)
  - Tachycardia [None]
  - Product physical issue [None]
  - Product quality issue [None]
  - Erythema [None]
  - Anxiety [None]
  - Product label issue [None]
  - Product substitution issue [None]
  - Product packaging confusion [None]
  - Condition aggravated [None]

NARRATIVE: CASE EVENT DATE: 20180515
